FAERS Safety Report 18287266 (Version 1)
Quarter: 2020Q3

REPORT INFORMATION
  Report Type: Spontaneous
  Country: FR (occurrence: FR)
  Receive Date: 20200921
  Receipt Date: 20200921
  Transmission Date: 20201103
  Serious: Yes (Death, Other)
  Sender: FDA-Public Use
  Company Number: FR-B.I. PHARMACEUTICALS,INC./RIDGEFIELD-2020-BI-049266

PATIENT
  Age: 89 Year
  Sex: Female
  Weight: 50 kg

DRUGS (1)
  1. PRADAXA [Suspect]
     Active Substance: DABIGATRAN ETEXILATE MESYLATE
     Indication: ATRIAL FIBRILLATION
     Route: 048
     Dates: end: 20200810

REACTIONS (1)
  - Subdural haematoma [Fatal]

NARRATIVE: CASE EVENT DATE: 20200810
